FAERS Safety Report 19571982 (Version 4)
Quarter: 2022Q3

REPORT INFORMATION
  Report Type: Spontaneous
  Country: US (occurrence: None)
  Receive Date: 20210716
  Receipt Date: 20220711
  Transmission Date: 20221027
  Serious: Yes (Death)
  Sender: FDA-Public Use
  Company Number: 2021A626130

PATIENT
  Age: 14 Year
  Sex: Female
  Weight: 50.3 kg

DRUGS (2)
  1. SEROQUEL [Suspect]
     Active Substance: QUETIAPINE FUMARATE
     Indication: Mental disorder
     Route: 048
     Dates: start: 2001, end: 2004
  2. SEROQUEL [Suspect]
     Active Substance: QUETIAPINE FUMARATE
     Indication: Mental disorder
     Route: 048
     Dates: start: 20040918

REACTIONS (8)
  - Toxicity to various agents [Fatal]
  - Pulmonary oedema [Fatal]
  - Mouth injury [Fatal]
  - Asphyxia [Fatal]
  - Exposure to violent event [Fatal]
  - Overdose [Fatal]
  - Affective disorder [Recovered/Resolved]
  - Paranoia [Recovered/Resolved]

NARRATIVE: CASE EVENT DATE: 20010101
